FAERS Safety Report 7547488-5 (Version None)
Quarter: 2011Q2

REPORT INFORMATION
  Report Type: 
  Country: None (occurrence: None)
  Receive Date: 20110614
  Receipt Date: 20110607
  Transmission Date: 20111010
  Serious: Yes (Other)
  Sender: FDA-Public Use
  Company Number: US-US-EMD SERONO, INC.-7028458

PATIENT
  Sex: Female
  Weight: 62 kg

DRUGS (8)
  1. REBIF [Suspect]
     Indication: MULTIPLE SCLEROSIS
     Route: 058
     Dates: start: 20100716, end: 20101001
  2. TOPROL-XL [Concomitant]
     Indication: HYPERTENSION
  3. LYRICA [Concomitant]
     Indication: NEURALGIA
  4. LIDOCAINE PATCHES [Concomitant]
     Indication: HERPES ZOSTER
  5. REBIF [Suspect]
     Route: 058
     Dates: start: 20101001
  6. ATIVAN [Concomitant]
     Indication: NERVOUS SYSTEM DISORDER
  7. VASOCAL [Concomitant]
     Indication: HYPERTENSION
  8. ZOLOFT [Concomitant]
     Indication: DEPRESSION

REACTIONS (3)
  - CHALAZION [None]
  - RASH [None]
  - HERPES ZOSTER [None]
